FAERS Safety Report 8961318 (Version 2)
Quarter: 2012Q4

REPORT INFORMATION
  Report Type: 
  Country: AU (occurrence: AU)
  Receive Date: 20121213
  Receipt Date: 20121221
  Transmission Date: 20130627
  Serious: Yes (Other)
  Sender: FDA-Public Use
  Company Number: AU-JNJFOC-20121203992

PATIENT
  Sex: Female

DRUGS (1)
  1. NICORETTE QUICKMIST [Suspect]
     Indication: PRODUCT USED FOR UNKNOWN INDICATION
     Route: 048
     Dates: start: 201211, end: 201211

REACTIONS (2)
  - Asthma [Recovered/Resolved]
  - Intentional drug misuse [Unknown]
